FAERS Safety Report 8114726-X (Version None)
Quarter: 2012Q1

REPORT INFORMATION
  Report Type: 
  Country: None (occurrence: None)
  Receive Date: 20120206
  Receipt Date: 20120127
  Transmission Date: 20120608
  Serious: Yes (Disabling, Other)
  Sender: FDA-Public Use
  Company Number: GB-TEVA-320149ISR

PATIENT
  Age: 85 Year
  Sex: Female
  Weight: 57 kg

DRUGS (15)
  1. METFORMIN HCL [Suspect]
     Indication: TYPE 2 DIABETES MELLITUS
     Dosage: 2 DOSAGE FORMS; TAKEN AT TEA TIME
     Route: 048
     Dates: start: 20111024, end: 20111205
  2. ZAPAIN [Concomitant]
     Dosage: 30MG + 500MG 1-2 THREE TIMES DAILY
  3. LEVOTHYROXINE SODIUM [Concomitant]
     Dosage: 50 MICROGRAM;
  4. LOSARTAN POTASSIUM [Concomitant]
     Dosage: 50 MILLIGRAM;
  5. LANSOPRAZOLE [Concomitant]
  6. FUROSEMIDE [Concomitant]
     Dosage: 40 MILLIGRAM;
  7. PHARMACEUTICAL IDENTITY CANESTAN [Concomitant]
     Dosage: 3 DOSAGE FORMS;
  8. NICORANDIL [Concomitant]
     Dosage: 40 MILLIGRAM;
  9. DIGOXIN [Concomitant]
     Dosage: 125 MICROGRAM;
  10. ISMN [Concomitant]
     Dosage: 40 MILLIGRAM;
  11. WARFARIN SODIUM [Concomitant]
  12. SPIRONOLACTONE [Concomitant]
     Dosage: 12.5 MILLIGRAM;
  13. BISOPROLOL [Concomitant]
     Dosage: 5 MILLIGRAM;
  14. LACTULOSE [Concomitant]
     Dosage: 3.1-3.7G/5ML
  15. IBANDRONATE SODIUM [Concomitant]

REACTIONS (1)
  - CUTANEOUS VASCULITIS [None]
